FAERS Safety Report 9371719 (Version 5)
Quarter: 2013Q4

REPORT INFORMATION
  Report Type: Spontaneous
  Country: US (occurrence: US)
  Receive Date: 20130627
  Receipt Date: 20131030
  Transmission Date: 20140711
  Serious: Yes (Hospitalization)
  Sender: FDA-Public Use
  Company Number: US-PFIZER INC-2013189675

PATIENT
  Age: 73 Year
  Sex: Female

DRUGS (2)
  1. XALKORI [Suspect]
     Indication: LUNG NEOPLASM MALIGNANT
     Dosage: 250 MG, 1 CAPSULE TWICE A DAY
     Route: 048
  2. XALKORI [Suspect]
     Dosage: 200 MG, 1 CAPSULE DAILY
     Dates: start: 20130621

REACTIONS (14)
  - Malaise [Unknown]
  - Back pain [Not Recovered/Not Resolved]
  - Aphagia [Not Recovered/Not Resolved]
  - Constipation [Unknown]
  - Local swelling [Unknown]
  - Joint swelling [Unknown]
  - Paraesthesia [Unknown]
  - Vision blurred [Unknown]
  - Nausea [Unknown]
  - Somnolence [Unknown]
  - Tremor [Unknown]
  - Dysphonia [Unknown]
  - Blood potassium decreased [Unknown]
  - Fall [Unknown]
